FAERS Safety Report 5099572-6 (Version None)
Quarter: 2006Q3

REPORT INFORMATION
  Report Type: 
  Country: None (occurrence: None)
  Receive Date: 20060906
  Receipt Date: 20060826
  Transmission Date: 20061208
  Serious: Yes (Other)
  Sender: FDA-Public Use
  Company Number: 2006086453

PATIENT
  Sex: Male
  Weight: 127.8236 kg

DRUGS (1)
  1. GLUCOTROL XL [Suspect]
     Indication: DIABETES MELLITUS

REACTIONS (3)
  - COLON CANCER [None]
  - GLYCOSYLATED HAEMOGLOBIN INCREASED [None]
  - MEDICATION RESIDUE [None]
